FAERS Safety Report 14299767 (Version 2)
Quarter: 2017Q4

REPORT INFORMATION
  Report Type: Spontaneous
  Country: RU (occurrence: RU)
  Receive Date: 20171219
  Receipt Date: 20171229
  Transmission Date: 20180321
  Serious: Yes (Hospitalization)
  Sender: FDA-Public Use
  Company Number: RU-ASTRAZENECA-2017SF28934

PATIENT
  Age: 59 Year
  Sex: Female
  Weight: 88 kg

DRUGS (6)
  1. OMEPRAZOLE. [Concomitant]
     Active Substance: OMEPRAZOLE
  2. PERINEVA [Concomitant]
     Active Substance: PERINDOPRIL ERBUMINE
  3. METFORMIN [Concomitant]
     Active Substance: METFORMIN HYDROCHLORIDE
  4. FORXIGA [Suspect]
     Active Substance: DAPAGLIFLOZIN
     Indication: TYPE 2 DIABETES MELLITUS
     Route: 048
     Dates: start: 201701
  5. INSULIN [Concomitant]
     Active Substance: INSULIN NOS
  6. THIOCTACID [Concomitant]
     Active Substance: THIOCTIC ACID

REACTIONS (2)
  - Sialoadenitis [Unknown]
  - Salivary gland calculus [Unknown]
